FAERS Safety Report 13396669 (Version 1)
Quarter: 2017Q2

REPORT INFORMATION
  Report Type: Spontaneous
  Country: US (occurrence: US)
  Receive Date: 20170403
  Receipt Date: 20170403
  Transmission Date: 20170830
  Serious: Yes (Death)
  Sender: FDA-Public Use
  Company Number: None

PATIENT
  Age: 65 Year
  Sex: Male

DRUGS (1)
  1. TACROLIMUS .5MG MYLAN [Suspect]
     Active Substance: TACROLIMUS
     Indication: NEUTROPENIA
     Route: 048
     Dates: start: 20170202

REACTIONS (1)
  - Death [None]
